FAERS Safety Report 9553607 (Version 1)
Quarter: 2013Q3

REPORT INFORMATION
  Report Type: Spontaneous
  Country: US (occurrence: None)
  Receive Date: 20130916
  Receipt Date: 20130916
  Transmission Date: 20140515
  Serious: Yes (Life-Threatening, Hospitalization)
  Sender: FDA-Public Use
  Company Number: JPI-P-020682

PATIENT
  Age: 16 Year
  Sex: Male

DRUGS (3)
  1. XYREM (500 MILLIGRAM/MILLILITERS, SOLUTION)(SODIUM OXYBATE) [Suspect]
     Indication: CATAPLEXY
     Dosage: 2.25 GM, 2 IN 1 D)
     Route: 048
     Dates: start: 20120225, end: 20120325
  2. PROZAC (FLUOXETINE) [Concomitant]
  3. MODIODAL (MODAFINIL) [Concomitant]

REACTIONS (5)
  - Hypernatraemia [None]
  - Suicide attempt [None]
  - Toxicity to various agents [None]
  - Coma [None]
  - Headache [None]
